FAERS Safety Report 5135187-9 (Version None)
Quarter: 2006Q4

REPORT INFORMATION
  Report Type: 
  Country: None (occurrence: None)
  Receive Date: 20061026
  Receipt Date: 20061013
  Transmission Date: 20070319
  Serious: Yes (Other)
  Sender: FDA-Public Use
  Company Number: PHBS2006BR16192

PATIENT
  Age: 3 Year
  Sex: Female
  Weight: 18 kg

DRUGS (5)
  1. ZADITEN [Suspect]
     Indication: HYPERSENSITIVITY
     Dosage: UNK, BID
     Route: 048
     Dates: end: 20061010
  2. NASONEX [Concomitant]
     Indication: RHINITIS
     Dosage: 100 MG/DAY
     Route: 045
     Dates: start: 20060901
  3. AEROLIN [Concomitant]
     Indication: BRONCHITIS
     Dosage: UNK, PRN
  4. ATROVENT [Concomitant]
     Indication: BRONCHITIS
     Dosage: UNK, PRN
  5. MUCOSOLVAN [Concomitant]
     Indication: BRONCHITIS
     Dosage: UNK, QD
     Route: 048

REACTIONS (1)
  - APNOEIC ATTACK [None]
